FAERS Safety Report 5331132-1 (Version None)
Quarter: 2007Q2

REPORT INFORMATION
  Report Type: 
  Country: None (occurrence: None)
  Receive Date: 20070522
  Receipt Date: 20070510
  Transmission Date: 20071010
  Serious: Yes (Death)
  Sender: FDA-Public Use
  Company Number: FR-AVENTIS-200711629FR

PATIENT
  Age: 81 Year
  Sex: Male
  Weight: 85 kg

DRUGS (19)
  1. FLAGYL [Suspect]
     Route: 048
     Dates: start: 20070214, end: 20070219
  2. LASILIX                            /00032601/ [Suspect]
     Route: 048
     Dates: end: 20070218
  3. LOVENOX [Suspect]
     Dates: end: 20070219
  4. COLCHIMAX (FRANCE) [Suspect]
     Route: 048
     Dates: start: 20070205, end: 20070220
  5. CORDARONE [Suspect]
     Route: 048
     Dates: end: 20070218
  6. ALDACTONE [Suspect]
     Route: 048
     Dates: start: 20070207, end: 20070219
  7. VASTEN                             /00880402/ [Concomitant]
     Route: 048
     Dates: end: 20070201
  8. IMOVANE [Concomitant]
     Route: 048
     Dates: end: 20070201
  9. TAVANIC [Concomitant]
     Dates: start: 20070129, end: 20070201
  10. VENTOLINE                          /00139501/ [Concomitant]
     Dates: end: 20070201
  11. KARDEGIC                           /00002703/ [Concomitant]
     Route: 048
     Dates: end: 20070201
  12. IMODIUM [Concomitant]
     Route: 048
     Dates: end: 20070201
  13. ULTRA-LEVURE                       /00838001/ [Concomitant]
     Route: 048
     Dates: end: 20070201
  14. SINGULAIR [Concomitant]
     Route: 048
     Dates: end: 20070201
  15. SPIRIVA [Concomitant]
     Route: 055
     Dates: end: 20070201
  16. ALLOPURINOL [Concomitant]
     Route: 048
     Dates: end: 20070201
  17. ROCEPHIN [Concomitant]
     Dates: start: 20070129, end: 20070201
  18. EFFERALGAN                         /00020001/ [Concomitant]
     Dates: end: 20070201
  19. CALCIPARINE [Concomitant]
     Dates: start: 20070219

REACTIONS (15)
  - ACUTE RESPIRATORY FAILURE [None]
  - AGRANULOCYTOSIS [None]
  - ALANINE AMINOTRANSFERASE INCREASED [None]
  - CARDIAC FAILURE [None]
  - DIARRHOEA [None]
  - DYSPNOEA [None]
  - FEBRILE NEUTROPENIA [None]
  - HEPATIC FAILURE [None]
  - HYPERTHERMIA [None]
  - MIXED HEPATOCELLULAR-CHOLESTATIC INJURY [None]
  - MULTI-ORGAN FAILURE [None]
  - PANCYTOPENIA [None]
  - PNEUMONIA [None]
  - RENAL FAILURE ACUTE [None]
  - SEPSIS [None]
